FAERS Safety Report 5005647-X (Version None)
Quarter: 2006Q2

REPORT INFORMATION
  Report Type: 
  Country: None (occurrence: None)
  Receive Date: 20060515
  Receipt Date: 20060501
  Transmission Date: 20061013
  Serious: Yes (Hospitalization, Other)
  Sender: FDA-Public Use
  Company Number: 2006-05-0090

PATIENT
  Age: 11 Year
  Sex: Male

DRUGS (1)
  1. GREAT GRAPE CHILDREN'S CLARITIN SYRUP (LORATADINE) SYRUP [Suspect]
     Dosage: { 2TSP ORAL
     Route: 048
     Dates: start: 20060430, end: 20060430

REACTIONS (5)
  - AMNESIA [None]
  - BODY TEMPERATURE INCREASED [None]
  - CONVULSION [None]
  - FEELING HOT [None]
  - LOSS OF CONSCIOUSNESS [None]
